FAERS Safety Report 17029788 (Version 1)
Quarter: 2019Q4

REPORT INFORMATION
  Report Type: Report from Study
  Country: US (occurrence: US)
  Receive Date: 20191114
  Receipt Date: 20191114
  Transmission Date: 20200122
  Serious: Yes (Hospitalization, Other)
  Sender: FDA-Public Use
  Company Number: PHHY2019US086076

PATIENT
  Age: 17 Year
  Sex: Male
  Weight: 59.2 kg

DRUGS (38)
  1. TOBRAMYCIN. [Suspect]
     Active Substance: TOBRAMYCIN
     Dosage: 112 MG, BID
     Route: 065
     Dates: start: 20190204, end: 20190304
  2. ACETAMINOPHEN. [Concomitant]
     Active Substance: ACETAMINOPHEN
     Indication: PAIN
  3. TOBI [Concomitant]
     Active Substance: TOBRAMYCIN
     Indication: PSEUDOMONAS TEST POSITIVE
     Dosage: 112 MG, BID
     Route: 065
     Dates: start: 20150729
  4. TRIMETHOPRIM. [Concomitant]
     Active Substance: TRIMETHOPRIM
     Indication: INFECTIVE PULMONARY EXACERBATION OF CYSTIC FIBROSIS
     Dosage: 160 MILLIGRAM, TID
     Route: 048
     Dates: start: 20180222, end: 20180307
  5. LIDOCAINE. [Concomitant]
     Active Substance: LIDOCAINE
     Indication: PAIN
     Dosage: UNK
     Route: 065
     Dates: start: 20180524, end: 20180524
  6. LACTOBACILLUS [Concomitant]
     Active Substance: LACTOBACILLUS ACIDOPHILUS
     Indication: ANTIBIOTIC THERAPY
     Dosage: UNK
     Route: 065
     Dates: start: 20180522, end: 20180524
  7. NARCAN [Concomitant]
     Active Substance: NALOXONE HYDROCHLORIDE
     Indication: PRODUCT USED FOR UNKNOWN INDICATION
     Dosage: UNK
     Route: 065
     Dates: start: 20180222, end: 20180227
  8. VEST [Concomitant]
     Indication: CYSTIC FIBROSIS LUNG
     Dosage: UNK
     Route: 065
     Dates: start: 20070111
  9. CREON [Concomitant]
     Active Substance: PANCRELIPASE AMYLASE\PANCRELIPASE LIPASE\PANCRELIPASE PROTEASE
     Indication: PANCREATIC FAILURE
     Dosage: 6 DOSAGE FORM AT MEALS
     Route: 048
  10. CREON [Concomitant]
     Active Substance: PANCRELIPASE AMYLASE\PANCRELIPASE LIPASE\PANCRELIPASE PROTEASE
     Dosage: 4 DOSAGE FORM AT SNACK
     Route: 048
  11. TOBRAMYCIN. [Suspect]
     Active Substance: TOBRAMYCIN
     Indication: PSEUDOMONAS INFECTION
     Dosage: UNK
     Route: 065
     Dates: start: 20180501, end: 20180528
  12. LACTOBACILLUS [Concomitant]
     Active Substance: LACTOBACILLUS ACIDOPHILUS
     Dosage: UNK
     Route: 065
     Dates: start: 20180531
  13. PEDIASURE [Concomitant]
     Active Substance: VITAMINS
     Indication: PANCREATIC FAILURE
     Dosage: 4 CAND OVERNIGHT
     Route: 065
     Dates: start: 20140320
  14. HEPARIN [Concomitant]
     Active Substance: HEPARIN SODIUM
     Dosage: UNK
     Route: 065
     Dates: start: 20190131
  15. SODIUM CHLORIDE. [Concomitant]
     Active Substance: SODIUM CHLORIDE
     Dosage: UNK
     Route: 065
     Dates: start: 20180223, end: 20180227
  16. AZITHROMYCIN ANHYDROUS. [Concomitant]
     Active Substance: AZITHROMYCIN ANHYDROUS
     Indication: CYSTIC FIBROSIS LUNG
     Dosage: 500 MILLIGRAM, M,W,F
     Route: 065
     Dates: start: 20180307
  17. DIPHENHYDRAMINE. [Concomitant]
     Active Substance: DIPHENHYDRAMINE
     Indication: PRODUCT USED FOR UNKNOWN INDICATION
     Dosage: UNK
     Route: 065
     Dates: start: 20180517, end: 20180524
  18. HEPARIN [Concomitant]
     Active Substance: HEPARIN SODIUM
     Dosage: UNK
     Route: 065
     Dates: start: 20180517, end: 20180524
  19. MULTIVITAMINS [Concomitant]
     Active Substance: VITAMINS
     Indication: PANCREATIC FAILURE
     Dosage: UNK
     Route: 065
     Dates: start: 20190410
  20. PULMOZYME [Concomitant]
     Active Substance: DORNASE ALFA
     Indication: CYSTIC FIBROSIS LUNG
     Dosage: 2.5 MILLIGRAM, QD
     Route: 065
     Dates: start: 20020214
  21. CREON [Concomitant]
     Active Substance: PANCRELIPASE AMYLASE\PANCRELIPASE LIPASE\PANCRELIPASE PROTEASE
     Dosage: UNK
     Route: 065
     Dates: start: 20170823
  22. KENALOG [Concomitant]
     Active Substance: TRIAMCINOLONE ACETONIDE
     Indication: RASH
     Dosage: UNK
     Route: 065
     Dates: start: 20180517, end: 20180524
  23. HEPARIN [Concomitant]
     Active Substance: HEPARIN SODIUM
     Indication: VASCULAR DEVICE USER
     Dosage: UNK
     Route: 065
     Dates: start: 20180222, end: 20180227
  24. TOBRAMYCIN. [Suspect]
     Active Substance: TOBRAMYCIN
     Indication: CYSTIC FIBROSIS
     Dosage: UNK
     Route: 065
     Dates: start: 20180115, end: 20180212
  25. AZITHROMYCIN ANHYDROUS. [Concomitant]
     Active Substance: AZITHROMYCIN ANHYDROUS
     Indication: CYSTIC FIBROSIS
  26. CREON [Concomitant]
     Active Substance: PANCRELIPASE AMYLASE\PANCRELIPASE LIPASE\PANCRELIPASE PROTEASE
     Dosage: 4 DOSAGE FORM AT SNACK
     Route: 048
  27. ACETAMINOPHEN. [Concomitant]
     Active Substance: ACETAMINOPHEN
     Indication: PYREXIA
     Dosage: UNK
     Route: 065
     Dates: start: 20180517, end: 20180524
  28. PRILOCAINE [Concomitant]
     Active Substance: PRILOCAINE
     Indication: ANAESTHESIA
     Dosage: UNK
     Route: 065
     Dates: start: 20180222, end: 20180227
  29. SODIUM CHLORIDE. [Concomitant]
     Active Substance: SODIUM CHLORIDE
     Indication: CHRONIC SINUSITIS
     Dosage: 4 MILLILITER, BID
     Route: 065
     Dates: start: 20140207
  30. SODIUM CHLORIDE. [Concomitant]
     Active Substance: SODIUM CHLORIDE
     Dosage: UNK
     Route: 065
     Dates: start: 20180517, end: 20180524
  31. ALBUTEROL. [Concomitant]
     Active Substance: ALBUTEROL
     Indication: CYSTIC FIBROSIS LUNG
     Dosage: 3 ML, BID
     Route: 065
     Dates: start: 20010823
  32. KENALOG [Concomitant]
     Active Substance: TRIAMCINOLONE ACETONIDE
     Indication: EXCESSIVE GRANULATION TISSUE
     Dosage: 1 DF, BID
     Route: 061
     Dates: start: 20130313
  33. TOBRAMYCIN. [Suspect]
     Active Substance: TOBRAMYCIN
     Dosage: UNK
     Route: 065
     Dates: start: 20181015, end: 20181112
  34. PULMOZYME [Concomitant]
     Active Substance: DORNASE ALFA
     Indication: CYSTIC FIBROSIS
  35. CREON [Concomitant]
     Active Substance: PANCRELIPASE AMYLASE\PANCRELIPASE LIPASE\PANCRELIPASE PROTEASE
     Dosage: 6 DOSAGE FORM AT MEALS
     Route: 048
  36. HEPARIN [Concomitant]
     Active Substance: HEPARIN SODIUM
     Dosage: 5 MILLILITER, MONTHLY OR AS NECESSARY
     Route: 042
     Dates: start: 20190328
  37. SULFAMETHOXAZOLE [Concomitant]
     Active Substance: SULFAMETHOXAZOLE
     Indication: INFECTIVE PULMONARY EXACERBATION OF CYSTIC FIBROSIS
     Dosage: 800 MILLIGRAM, TID
     Route: 048
     Dates: start: 20180222, end: 20180307
  38. LIDOCAINE. [Concomitant]
     Active Substance: LIDOCAINE
     Indication: ANAESTHESIA
     Dosage: UNK
     Route: 065
     Dates: start: 20180222, end: 20180227

REACTIONS (10)
  - Infective pulmonary exacerbation of cystic fibrosis [Recovered/Resolved]
  - Productive cough [Recovered/Resolved]
  - Dermatitis contact [Recovered/Resolved]
  - Infective pulmonary exacerbation of cystic fibrosis [Recovered/Resolved]
  - Cough [Recovered/Resolved]
  - Infective pulmonary exacerbation of cystic fibrosis [Recovered/Resolved]
  - Cough [Recovered/Resolved]
  - Infective pulmonary exacerbation of cystic fibrosis [Recovered/Resolved]
  - Cough [Recovered/Resolved]
  - Cough [Recovered/Resolved]

NARRATIVE: CASE EVENT DATE: 20180201
